FAERS Safety Report 26071766 (Version 1)
Quarter: 2025Q4

REPORT INFORMATION
  Report Type: Spontaneous
  Country: BR (occurrence: BR)
  Receive Date: 20251120
  Receipt Date: 20251120
  Transmission Date: 20260118
  Serious: Yes (Other)
  Sender: MYLAN
  Company Number: BR-MYLANLABS-2025M1098933

PATIENT
  Age: 28 Year
  Sex: Female

DRUGS (4)
  1. SERTRALINE [Suspect]
     Active Substance: SERTRALINE HYDROCHLORIDE
     Indication: Anxiety
     Dosage: 50 MILLIGRAM (STARTED RECEIVING FOR A DURATION OF SIX MONTHS)
  2. SERTRALINE [Suspect]
     Active Substance: SERTRALINE HYDROCHLORIDE
     Dosage: 50 MILLIGRAM (STARTED RECEIVING FOR A DURATION OF SIX MONTHS)
     Route: 065
  3. SERTRALINE [Suspect]
     Active Substance: SERTRALINE HYDROCHLORIDE
     Dosage: 50 MILLIGRAM (STARTED RECEIVING FOR A DURATION OF SIX MONTHS)
     Route: 065
  4. SERTRALINE [Suspect]
     Active Substance: SERTRALINE HYDROCHLORIDE
     Dosage: 50 MILLIGRAM (STARTED RECEIVING FOR A DURATION OF SIX MONTHS)

REACTIONS (1)
  - Drug ineffective [Unknown]
